FAERS Safety Report 14326235 (Version 1)
Quarter: 2017Q4

REPORT INFORMATION
  Report Type: Report from Study
  Country: GB (occurrence: GB)
  Receive Date: 20171227
  Receipt Date: 20171227
  Transmission Date: 20180321
  Serious: Yes (Other)
  Sender: FDA-Public Use
  Company Number: PHHY2017GB192752

PATIENT
  Sex: Female

DRUGS (1)
  1. COSENTYX [Suspect]
     Active Substance: SECUKINUMAB
     Indication: ANKYLOSING SPONDYLITIS
     Dosage: 150 MG PEN, QMO
     Route: 065
     Dates: start: 201711

REACTIONS (3)
  - Diarrhoea [Unknown]
  - Inflammatory bowel disease [Unknown]
  - Nausea [Unknown]
